FAERS Safety Report 10081240 (Version 1)
Quarter: 2014Q2

REPORT INFORMATION
  Report Type: Spontaneous
  Country: US (occurrence: US)
  Receive Date: 20140416
  Receipt Date: 20140416
  Transmission Date: 20141212
  Serious: No
  Sender: FDA-Public Use
  Company Number: US-PFIZER INC-2014102677

PATIENT
  Age: 59 Year
  Sex: Female
  Weight: 99.77 kg

DRUGS (5)
  1. VFEND [Suspect]
     Indication: CANDIDA INFECTION
     Dosage: 200 MG, 2X/DAY
     Dates: start: 201402
  2. LISINOPRIL [Concomitant]
     Indication: HYPERTENSION
     Dosage: 20 MG, DAILY
  3. REGLAN [Concomitant]
     Dosage: 5 MG, 3X/DAY
  4. WELLBUTRIN [Concomitant]
     Dosage: 150 MG, DAILY
  5. VIMOVO [Concomitant]
     Dosage: 20 MG, DAILY

REACTIONS (2)
  - Gastroenteritis viral [Unknown]
  - Alopecia [Unknown]
